FAERS Safety Report 9837076 (Version 2)
Quarter: 2014Q1

REPORT INFORMATION
  Report Type: Spontaneous
  Country: IT (occurrence: IT)
  Receive Date: 20140123
  Receipt Date: 20140219
  Transmission Date: 20141002
  Serious: Yes (Hospitalization)
  Sender: FDA-Public Use
  Company Number: IT-ROCHE-1336070

PATIENT
  Age: 85 Year
  Sex: Female

DRUGS (3)
  1. ROCEFIN [Suspect]
     Indication: CHRONIC OBSTRUCTIVE PULMONARY DISEASE
     Dosage: 1 G
     Route: 030
     Dates: start: 20131203, end: 20131203
  2. COMBISARTAN [Concomitant]
  3. LEVOBREN [Concomitant]
     Dosage: 25 MG/ML ORAL SOLUTION GTT
     Route: 048

REACTIONS (2)
  - Anaphylactic shock [Unknown]
  - Ischaemia [Unknown]
